FAERS Safety Report 16365382 (Version 12)
Quarter: 2019Q3

REPORT INFORMATION
  Report Type: Spontaneous
  Country: BR (occurrence: BR)
  Receive Date: 20190529
  Receipt Date: 20190805
  Transmission Date: 20191004
  Serious: Yes (Other)
  Sender: FDA-Public Use
  Company Number: BR-JAZZ-2019-BR-007084

PATIENT
  Age: 34 Year
  Sex: Male

DRUGS (8)
  1. ACICLOVIR [Suspect]
     Active Substance: ACYCLOVIR
     Indication: PROPHYLAXIS
     Dosage: 250 MG EVERY 8 HOURS
     Route: 042
     Dates: start: 20190501
  2. MEROPENEM TRIHYDRATE [Concomitant]
     Active Substance: MEROPENEM
     Indication: FEBRILE NEUTROPENIA
  3. MEROPENEM TRIHYDRATE [Concomitant]
     Active Substance: MEROPENEM
     Indication: SEPSIS
     Dosage: 1G EVERY 8 HOURS
     Route: 042
     Dates: start: 20190513
  4. ACICLOVIR [Suspect]
     Active Substance: ACYCLOVIR
     Indication: PYREXIA
  5. GANCICLOVIR. [Suspect]
     Active Substance: GANCICLOVIR
     Indication: PRODUCT USED FOR UNKNOWN INDICATION
     Dosage: 450 MG, UNK
     Route: 042
  6. METRONIDAZOLE BENZOATE [Concomitant]
     Active Substance: METRONIDAZOLE BENZOATE
     Indication: COLITIS
     Dosage: 500MG EVERY 8 HOURS
     Route: 042
     Dates: start: 20190519
  7. DEFIBROTIDE (NPB) [Suspect]
     Active Substance: DEFIBROTIDE SODIUM
     Indication: VENOOCCLUSIVE LIVER DISEASE
     Dosage: 2250 MG, QD
     Route: 042
     Dates: start: 20190513, end: 20190602
  8. AMPHOTERICIN B. [Concomitant]
     Active Substance: AMPHOTERICIN B
     Indication: SEPSIS
     Dosage: 300 MG, QD
     Dates: start: 20190512

REACTIONS (11)
  - Colitis [Recovered/Resolved]
  - Abdominal pain [Recovered/Resolved]
  - Graft versus host disease [Recovered/Resolved]
  - Neutropenia [Recovered/Resolved]
  - Enteritis [Recovered/Resolved]
  - Febrile neutropenia [Unknown]
  - Endocarditis [Recovered/Resolved]
  - Enterococcal bacteraemia [Recovered/Resolved]
  - Cystitis [Recovered/Resolved]
  - Cytomegalovirus infection [Recovered/Resolved]
  - Pyrexia [Recovered/Resolved]

NARRATIVE: CASE EVENT DATE: 20190515
